FAERS Safety Report 20745727 (Version 1)
Quarter: 2022Q2

REPORT INFORMATION
  Report Type: Spontaneous
  Country: CA (occurrence: None)
  Receive Date: 20220425
  Receipt Date: 20220425
  Transmission Date: 20220720
  Serious: Yes (Other)
  Sender: FDA-Public Use
  Company Number: CA-ROCHE-3079217

PATIENT
  Age: 9 Year
  Sex: Female

DRUGS (2)
  1. SOMATROPIN [Suspect]
     Active Substance: SOMATROPIN
     Indication: Product used for unknown indication
     Route: 065
  2. ELIGARD [Suspect]
     Active Substance: LEUPROLIDE ACETATE
     Indication: Product used for unknown indication
     Route: 065

REACTIONS (1)
  - Focal nodular hyperplasia [Unknown]
